FAERS Safety Report 10184608 (Version 3)
Quarter: 2014Q3

REPORT INFORMATION
  Report Type: Report from Study
  Country: IT (occurrence: None)
  Receive Date: 20140519
  Receipt Date: 20140916
  Transmission Date: 20150326
  Serious: Yes (Hospitalization, Other)
  Sender: FDA-Public Use
  Company Number: ADR-2014-00832

PATIENT
  Age: 11 Year
  Sex: Male

DRUGS (13)
  1. BACLOFEN INTRATHECAL [Suspect]
     Active Substance: BACLOFEN
     Indication: QUADRIPLEGIA
     Dates: start: 200709, end: 20140512
  2. CLONAZEPAM (CLONAZEPAM) [Concomitant]
  3. TIVC VS TIV [Suspect]
     Active Substance: INFLUENZA VIRUS VACCINE
     Indication: IMMUNISATION
     Dates: start: 20131203
  4. MENVEO [Concomitant]
     Active Substance: NEISSERIA MENINGITIDIS GROUP A CAPSULAR OLIGOSACCHARIDE DIPHTHERIA CRM197 PROTEIN CONJUGATE ANTIGEN\NEISSERIA MENINGITIDIS GROUP C CAPSULAR OLIGOSACCHARIDE DIPHTHERIA CRM197 PROTEIN CONJUGATE ANTIGEN\NEISSERIA MENINGITIDIS GROUP W-135 CAPSULAR OLIGOSACCHARIDE DIPHTHERIA CRM197 PROTEIN CONJUGATE ANTI
  5. TETRAVAC (DIPHTHERIA VACCINE, PERTUSSIS VACCINE, POL, OXCARBAZEPINE (OXCARBAZEPINE) [Concomitant]
  6. ZICONOTIDE INTRATHECAL [Suspect]
     Active Substance: ZICONOTIDE
     Indication: ASTROCYTOMA
     Dates: start: 201209, end: 20140512
  7. TETRAVAC (DIPHTHERIA VACCINE, PERTUSSIS VACCINE, POLIO VACCINE, TETANUS VACCINE) [Concomitant]
  8. DIAZEPAM (DIAZEPAM) [Concomitant]
     Active Substance: DIAZEPAM
  9. PREVENAR [Concomitant]
     Active Substance: PNEUMOCOCCAL 7-VALENT CONJUGATE VACCINE (DIPHTHERIA CRM197 PROTEIN)
  10. PAROXETINE (PAROXETINE) [Concomitant]
     Active Substance: PAROXETINE HYDROCHLORIDE
  11. LEVOTIROXINA (LEVOTHYROXINE SODIUM) [Concomitant]
     Active Substance: LEVOTHYROXINE SODIUM
  12. TRIPTORELIN (TRIPTORELIN) [Concomitant]
  13. TRAZODONE [Concomitant]
     Active Substance: TRAZODONE HYDROCHLORIDE

REACTIONS (8)
  - Vomiting [None]
  - Toxicity to various agents [None]
  - Withdrawal syndrome [None]
  - Headache [None]
  - Hypotension [None]
  - Hypertension [None]
  - Toxic encephalopathy [None]
  - Drug administration error [None]

NARRATIVE: CASE EVENT DATE: 20140417
